FAERS Safety Report 9157990 (Version 1)
Quarter: 2013Q1

REPORT INFORMATION
  Report Type: Spontaneous
  Country: US (occurrence: US)
  Receive Date: 20130312
  Receipt Date: 20130312
  Transmission Date: 20140127
  Serious: No
  Sender: FDA-Public Use
  Company Number: US-ASTRAZENECA-2013SE12995

PATIENT
  Age: 70 Year
  Sex: Male
  Weight: 87.1 kg

DRUGS (11)
  1. NEXIUM [Suspect]
     Indication: DYSPEPSIA
     Route: 048
  2. NEXIUM [Suspect]
     Indication: DYSPEPSIA
     Route: 048
     Dates: end: 201207
  3. LISINOPRIL [Suspect]
     Indication: HYPERTENSION
     Route: 048
  4. PRILOSEC [Suspect]
     Indication: DYSPEPSIA
     Route: 048
     Dates: start: 1996
  5. PRILOSEC [Suspect]
     Indication: BARRETT^S OESOPHAGUS
     Route: 048
     Dates: start: 1996
  6. PRILOSEC [Suspect]
     Indication: DYSPEPSIA
     Route: 048
  7. PRILOSEC [Suspect]
     Indication: BARRETT^S OESOPHAGUS
     Route: 048
  8. PRILOSEC [Suspect]
     Indication: DYSPEPSIA
     Route: 048
     Dates: start: 201207
  9. PRILOSEC [Suspect]
     Indication: BARRETT^S OESOPHAGUS
     Route: 048
     Dates: start: 201207
  10. LOVASTATIN [Concomitant]
     Indication: BLOOD CHOLESTEROL INCREASED
  11. MELOXICAM [Concomitant]

REACTIONS (6)
  - Arthritis [Unknown]
  - Blood cholesterol increased [Unknown]
  - Hyperchlorhydria [Unknown]
  - Hypertension [Unknown]
  - Intentional drug misuse [Unknown]
  - Drug ineffective [Unknown]
